FAERS Safety Report 25105681 (Version 1)
Quarter: 2025Q1

REPORT INFORMATION
  Report Type: Spontaneous
  Country: US (occurrence: None)
  Receive Date: 20250321
  Receipt Date: 20250321
  Transmission Date: 20250408
  Serious: Yes (Hospitalization)
  Sender: FDA-CTU
  Company Number: None

PATIENT
  Sex: Male

DRUGS (5)
  1. HEMOFIL M [Suspect]
     Active Substance: ANTIHEMOPHILIC FACTOR HUMAN
     Indication: Factor VIII deficiency
     Route: 042
     Dates: start: 202103
  2. DESCOVY [Concomitant]
     Active Substance: EMTRICITABINE\TENOFOVIR ALAFENAMIDE FUMARATE
  3. REZCOBIX [Concomitant]
  4. TIVICAY [Concomitant]
     Active Substance: DOLUTEGRAVIR SODIUM
  5. HEMLIBRA [Concomitant]
     Active Substance: EMICIZUMAB-KXWH

REACTIONS (5)
  - Joint microhaemorrhage [None]
  - Joint microhaemorrhage [None]
  - Epistaxis [None]
  - Food poisoning [None]
  - Dehydration [None]
